FAERS Safety Report 8314171 (Version 3)
Quarter: 2013Q3

REPORT INFORMATION
  Report Type: Spontaneous
  Country: FR (occurrence: None)
  Receive Date: 20111213
  Receipt Date: 20130930
  Transmission Date: 20140515
  Serious: Yes (Hospitalization)
  Sender: FDA-Public Use
  Company Number: 2011030493

PATIENT
  Age: 56 Year
  Sex: Male

DRUGS (3)
  1. SANDOGLOBULINE LYO (IMMUNE GLOBULIN INTRAVENOUS (HUMAN) ) , LOT# 4303900058, LOT# 4303700016 [Suspect]
     Indication: MULTIFOCAL MOTOR NEUROPATHY
     Dosage: INTRAVENOUS (NOT OTHERWISE SPECIFIED)
     Route: 042
     Dates: start: 20111026, end: 20111030
  2. HUMAN IMMUNOGLOBULIN G [Suspect]
     Dosage: 12 G BID, INTRAVENOUS (NOT OTHERWISE SPECIFIED)
     Route: 042
  3. HUMAN IMMUNOGLOBULIN G [Suspect]
     Dosage: 3 G QD; INTRAVENOUS (NOT OTHERWISE SPECIFIED)
     Route: 042

REACTIONS (1)
  - Toxic skin eruption [None]
